FAERS Safety Report 24917661 (Version 9)
Quarter: 2025Q4

REPORT INFORMATION
  Report Type: Spontaneous
  Country: US (occurrence: US)
  Receive Date: 20250203
  Receipt Date: 20251207
  Transmission Date: 20260118
  Serious: Yes (Hospitalization, Other)
  Sender: BRISTOL-MYERS SQUIBB COMPANY
  Company Number: US-BRISTOL-MYERS SQUIBB COMPANY-2025-016004

PATIENT
  Age: 65 Year
  Sex: Female

DRUGS (7)
  1. LENALIDOMIDE [Suspect]
     Active Substance: LENALIDOMIDE
     Indication: Plasma cell myeloma
     Route: 048
  2. LENALIDOMIDE [Suspect]
     Active Substance: LENALIDOMIDE
     Route: 048
  3. LENALIDOMIDE [Suspect]
     Active Substance: LENALIDOMIDE
     Route: 048
  4. LENALIDOMIDE [Suspect]
     Active Substance: LENALIDOMIDE
     Dosage: TAKE 1 CAPSULE BY MOUTH DAILY ALONG WITH ONE 2.5MG CAPSULE (7.5MG TOTAL) FOR 21 DAYS ON, 7 DAYS OFF
     Route: 048
  5. LENALIDOMIDE [Suspect]
     Active Substance: LENALIDOMIDE
     Dosage: TAKE 1 CAPSULE BY MOUTH DAILY ALONG WITH ONE 2.5MG CAPSULE (7.5MG TOTAL) FOR 21 DAYS ON, 7 DAYS OFF
     Route: 048
  6. LENALIDOMIDE [Suspect]
     Active Substance: LENALIDOMIDE
     Dosage: TAKE 1 CAPSULE BY MOUTH EVERY DAY FOR 21 DAYS THEN 7 DAYS OFF ALONG WITH 2.5MG FOR TOTAL DOSE OF 7.5MG
     Route: 048
  7. LENALIDOMIDE [Suspect]
     Active Substance: LENALIDOMIDE
     Dosage: TAKE 1 CAPSULE (2.5MG) BY MOUTH EVERY DAY FOR 21 DAYS THEN 7 DAYS OFF ALONG WITH 5MG FOR A TOTAL DOSE OF 7.5MG
     Route: 048

REACTIONS (10)
  - Gastrointestinal disorder [Recovered/Resolved]
  - Product prescribing issue [Unknown]
  - Therapy interrupted [Unknown]
  - Product dose omission issue [Unknown]
  - Insurance issue [Unknown]
  - Treatment noncompliance [Unknown]
  - Bronchitis [Recovered/Resolved]
  - Sinusitis [Recovering/Resolving]
  - Asthma [Recovered/Resolved]
  - Pneumonia [Recovered/Resolved]
